FAERS Safety Report 4358717-3 (Version None)
Quarter: 2004Q2

REPORT INFORMATION
  Report Type: 
  Country: None (occurrence: None)
  Receive Date: 20040511
  Receipt Date: 20040428
  Transmission Date: 20050107
  Serious: Yes (Hospitalization)
  Sender: FDA-Public Use
  Company Number: 206251

PATIENT
  Sex: Female
  Weight: 49 kg

DRUGS (6)
  1. BEVACIZUMAB (BEVACIZUMAB) [Suspect]
     Indication: BREAST CANCER METASTATIC
     Dosage: 1050 MG, Q2W, INTRAVENOUS
     Route: 042
     Dates: start: 20031105, end: 20040121
  2. PACLITAXEL [Suspect]
     Indication: BREAST CANCER METASTATIC
     Dosage: 405 MG, 1/WEEK, INTRAVENOUS
     Route: 042
     Dates: start: 20031105, end: 20040121
  3. ASPIRIN [Concomitant]
  4. NORVASC [Concomitant]
  5. PERCOCET [Concomitant]
  6. VALIUM [Concomitant]

REACTIONS (9)
  - BIOPSY BRONCHUS ABNORMAL [None]
  - CEREBROVASCULAR ACCIDENT [None]
  - DIFFUSE ALVEOLAR DAMAGE [None]
  - HYPERPLASIA [None]
  - HYPOTENSION [None]
  - HYPOXIA [None]
  - LUNG INFILTRATION [None]
  - PNEUMONITIS [None]
  - PULMONARY FIBROSIS [None]
